FAERS Safety Report 8601702-3 (Version None)
Quarter: 2012Q3

REPORT INFORMATION
  Report Type: 
  Country: None (occurrence: None)
  Receive Date: 20120817
  Receipt Date: 20120125
  Transmission Date: 20120928
  Serious: No
  Sender: FDA-Public Use
  Company Number: US-BRISTOL-MYERS SQUIBB COMPANY-16367369

PATIENT
  Age: 68 Year
  Sex: Male

DRUGS (6)
  1. SPRYCEL [Suspect]
     Indication: CHRONIC MYELOID LEUKAEMIA
  2. APAP TAB [Concomitant]
  3. IBUPROFEN [Concomitant]
  4. SIMVASTATIN [Concomitant]
  5. LEVITRA [Concomitant]
  6. LISINOPRIL [Concomitant]

REACTIONS (1)
  - PLEURAL EFFUSION [None]
